FAERS Safety Report 7922416-9 (Version None)
Quarter: 2011Q4

REPORT INFORMATION
  Report Type: 
  Country: None (occurrence: None)
  Receive Date: 20111117
  Receipt Date: 20110120
  Transmission Date: 20120403
  Serious: No
  Sender: FDA-Public Use
  Company Number: US-AMGEN-USASP2011003752

PATIENT
  Age: 63 Year
  Sex: Female

DRUGS (1)
  1. ENBREL [Suspect]
     Indication: RHEUMATOID ARTHRITIS
     Dosage: 50 MG, QWK
     Dates: start: 20100823, end: 20110110

REACTIONS (8)
  - PAIN [None]
  - BURSITIS [None]
  - INJECTION SITE HAEMATOMA [None]
  - FEELING HOT [None]
  - HEADACHE [None]
  - BLOOD PRESSURE INCREASED [None]
  - RHINORRHOEA [None]
  - DIZZINESS [None]
